FAERS Safety Report 26133663 (Version 1)
Quarter: 2025Q4

REPORT INFORMATION
  Report Type: Spontaneous
  Country: US (occurrence: US)
  Receive Date: 20251209
  Receipt Date: 20251209
  Transmission Date: 20260118
  Serious: Yes (Death, Life-Threatening, Hospitalization, Other)
  Sender: UNICHEM
  Company Number: US-UNICHEM LABORATORIES LIMITED-UNI-2025-US-004124

PATIENT

DRUGS (4)
  1. DIVALPROEX SODIUM [Suspect]
     Active Substance: DIVALPROEX SODIUM
     Indication: Acute psychosis
     Dosage: 500 MILLIGRAM, BID
     Route: 065
  2. DIVALPROEX SODIUM [Suspect]
     Active Substance: DIVALPROEX SODIUM
     Indication: Suicidal ideation
  3. ESCITALOPRAM [Concomitant]
     Active Substance: ESCITALOPRAM OXALATE
     Indication: Acute psychosis
     Dosage: 10 MILLIGRAM, QD
     Route: 065
  4. ESCITALOPRAM [Concomitant]
     Active Substance: ESCITALOPRAM OXALATE
     Indication: Suicidal ideation

REACTIONS (6)
  - Lactic acidosis [Fatal]
  - Brain oedema [Fatal]
  - Toxicity to various agents [Fatal]
  - Generalised tonic-clonic seizure [Fatal]
  - Hyperammonaemia [Fatal]
  - Encephalopathy [Fatal]
